FAERS Safety Report 13299720 (Version 1)
Quarter: 2017Q1

REPORT INFORMATION
  Report Type: Spontaneous
  Country: PK (occurrence: PK)
  Receive Date: 20170306
  Receipt Date: 20170306
  Transmission Date: 20170428
  Serious: Yes (Other)
  Sender: FDA-Public Use
  Company Number: PK-LUNDBECK-DKLU2025789

PATIENT
  Sex: Male

DRUGS (4)
  1. FRISIUM [Suspect]
     Active Substance: CLOBAZAM
     Indication: EPILEPSY
     Route: 048
  2. EPIVAL [Concomitant]
     Active Substance: DIVALPROEX SODIUM
     Indication: EPILEPSY
     Route: 065
  3. LAMICTAL [Concomitant]
     Active Substance: LAMOTRIGINE
     Indication: EPILEPSY
     Route: 065
  4. MOGADON [Concomitant]
     Active Substance: NITRAZEPAM
     Indication: EPILEPSY
     Route: 065

REACTIONS (2)
  - Cyanosis [Not Recovered/Not Resolved]
  - Condition aggravated [Not Recovered/Not Resolved]
